FAERS Safety Report 8356777-6 (Version None)
Quarter: 2012Q2

REPORT INFORMATION
  Report Type: 
  Country: None (occurrence: None)
  Receive Date: 20120511
  Receipt Date: 20120511
  Transmission Date: 20120825
  Serious: Yes (Hospitalization)
  Sender: FDA-Public Use
  Company Number: None

PATIENT
  Sex: Female
  Weight: 112 kg

DRUGS (8)
  1. ABRAXANE AND HERCEPTIN [Suspect]
     Indication: BREAST CANCER
     Dosage: 213 MG AND 224 MG IV
     Route: 042
     Dates: start: 20120302
  2. ABRAXANE AND HERCEPTIN [Suspect]
     Indication: CHEMOTHERAPY
     Dosage: 213 MG AND 224 MG IV
     Route: 042
     Dates: start: 20120302
  3. ONDANSETRON HCL [Concomitant]
  4. COZAAR [Concomitant]
  5. PROCHLOPERAZINE [Concomitant]
  6. CARBOPLATIN [Suspect]
     Indication: BREAST CANCER
     Dosage: 900 MG IV
     Route: 042
     Dates: start: 20120302
  7. CARBOPLATIN [Suspect]
     Indication: CHEMOTHERAPY
     Dosage: 900 MG IV
     Route: 042
     Dates: start: 20120302
  8. DEXAMETHASONE [Concomitant]

REACTIONS (9)
  - STREPTOCOCCUS TEST POSITIVE [None]
  - CELLULITIS [None]
  - NEUTROPENIC SEPSIS [None]
  - HYPERTENSION [None]
  - JUGULAR VEIN THROMBOSIS [None]
  - MEDICAL DEVICE COMPLICATION [None]
  - HYPOKALAEMIA [None]
  - ANAEMIA OF CHRONIC DISEASE [None]
  - RASH [None]
